FAERS Safety Report 7776772-5 (Version None)
Quarter: 2011Q3

REPORT INFORMATION
  Report Type: 
  Country: None (occurrence: None)
  Receive Date: 20110926
  Receipt Date: 20110517
  Transmission Date: 20111222
  Serious: No
  Sender: FDA-Public Use
  Company Number: US-BAYER-2011-043884

PATIENT
  Sex: Female

DRUGS (1)
  1. ULTRAVIST 150 [Suspect]
     Indication: PRODUCT USED FOR UNKNOWN INDICATION
     Dosage: 125 ML, ONCE
     Dates: start: 20110511, end: 20110511

REACTIONS (5)
  - URTICARIA [None]
  - EYE PRURITUS [None]
  - ERYTHEMA [None]
  - OCULAR HYPERAEMIA [None]
  - LACRIMATION INCREASED [None]
